FAERS Safety Report 19808833 (Version 1)
Quarter: 2021Q3

REPORT INFORMATION
  Report Type: Spontaneous
  Country: US (occurrence: US)
  Receive Date: 20210908
  Receipt Date: 20210908
  Transmission Date: 20211014
  Serious: Yes (Hospitalization)
  Sender: FDA-Public Use
  Company Number: US-MYLANLABS-2021M1059985

PATIENT
  Age: 39 Year
  Sex: Female

DRUGS (1)
  1. ADALIMUMAB [Suspect]
     Active Substance: ADALIMUMAB
     Indication: CROHN^S DISEASE
     Dosage: UNK
     Route: 065

REACTIONS (7)
  - Histoplasmosis disseminated [Unknown]
  - Splenomegaly [Unknown]
  - Ascites [Unknown]
  - Granulomatous liver disease [Unknown]
  - Portal hypertension [Unknown]
  - Pleural effusion [Unknown]
  - Papule [Unknown]
